FAERS Safety Report 4421508-9 (Version None)
Quarter: 2004Q3

REPORT INFORMATION
  Report Type: 
  Country: None (occurrence: None)
  Receive Date: 20040804
  Receipt Date: 20040709
  Transmission Date: 20050211
  Serious: Yes (Other)
  Sender: FDA-Public Use
  Company Number: USA030948659

PATIENT
  Age: 62 Year
  Sex: Female
  Weight: 64 kg

DRUGS (6)
  1. FORTEO [Suspect]
     Indication: OSTEOPOROSIS
     Dosage: 20 UG DAY
     Dates: start: 20030918
  2. ALLEGRA [Concomitant]
  3. MULTIVITAMIN [Concomitant]
  4. GLUCOSAMINE CHRONDROITIN [Concomitant]
  5. NIACIN [Concomitant]
  6. VITAMIN E [Concomitant]

REACTIONS (7)
  - BLADDER DISORDER [None]
  - DYSURIA [None]
  - INJECTION SITE ERYTHEMA [None]
  - INJECTION SITE HAEMORRHAGE [None]
  - PHARMACEUTICAL PRODUCT COMPLAINT [None]
  - PRURITUS [None]
  - VAGINAL DISORDER [None]
